FAERS Safety Report 15964786 (Version 1)
Quarter: 2019Q1

REPORT INFORMATION
  Report Type: Spontaneous
  Country: US (occurrence: US)
  Receive Date: 20190215
  Receipt Date: 20190215
  Transmission Date: 20190418
  Serious: No
  Sender: FDA-Public Use
  Company Number: US-BIOGEN-2019BI00696916

PATIENT

DRUGS (1)
  1. TYSABRI [Suspect]
     Active Substance: NATALIZUMAB
     Indication: MULTIPLE SCLEROSIS
     Route: 065

REACTIONS (6)
  - Balance disorder [Unknown]
  - Disturbance in attention [Unknown]
  - Feeling jittery [Unknown]
  - Malaise [Unknown]
  - Bradyphrenia [Unknown]
  - Fatigue [Unknown]
